FAERS Safety Report 25090818 (Version 1)
Quarter: 2025Q1

REPORT INFORMATION
  Report Type: Spontaneous
  Country: US (occurrence: None)
  Receive Date: 20250318
  Receipt Date: 20250318
  Transmission Date: 20250408
  Serious: Yes (Other)
  Sender: FDA-CTU
  Company Number: None

PATIENT
  Age: 53 Year
  Sex: Male
  Weight: 83.25 kg

DRUGS (4)
  1. BIVIGAM [Suspect]
     Active Substance: HUMAN IMMUNOGLOBULIN G
     Indication: Multiple sclerosis
     Route: 041
     Dates: start: 20250313
  2. Diphenhydramine 25mg PO premed [Concomitant]
     Dates: start: 20250313, end: 20250313
  3. Acetaminophen 650mg PO premed [Concomitant]
     Dates: start: 20250313, end: 20250313
  4. Benadryl 50mg IV [Concomitant]
     Dates: start: 20250313, end: 20250313

REACTIONS (2)
  - Infusion related reaction [None]
  - Urticaria [None]

NARRATIVE: CASE EVENT DATE: 20250313
